FAERS Safety Report 23934798 (Version 2)
Quarter: 2024Q2

REPORT INFORMATION
  Report Type: Spontaneous
  Country: DE (occurrence: DE)
  Receive Date: 20240604
  Receipt Date: 20240612
  Transmission Date: 20240716
  Serious: Yes (Death)
  Sender: FDA-Public Use
  Company Number: DE-BIOVITRUM-2024-DE-007861

PATIENT
  Age: 84 Year
  Sex: Male

DRUGS (1)
  1. ZYNLONTA [Suspect]
     Active Substance: LONCASTUXIMAB TESIRINE-LPYL
     Indication: High-grade B-cell lymphoma
     Dosage: UNK

REACTIONS (1)
  - Neoplasm progression [Fatal]
